FAERS Safety Report 5632204-4 (Version None)
Quarter: 2008Q1

REPORT INFORMATION
  Report Type: 
  Country: None (occurrence: None)
  Receive Date: 20080220
  Receipt Date: 20080211
  Transmission Date: 20080703
  Serious: Yes (Other)
  Sender: FDA-Public Use
  Company Number: GB-ALLERGAN-0801912US

PATIENT
  Sex: Female

DRUGS (1)
  1. BOTULINUM TOXIN TYPE A - GENERAL [Suspect]
     Indication: ANAL FISSURE
     Dosage: UNK, SINGLE

REACTIONS (5)
  - HAEMORRHAGE [None]
  - IMPAIRED HEALING [None]
  - INFLAMMATORY BOWEL DISEASE [None]
  - PAIN [None]
  - PERIANAL ABSCESS [None]
